FAERS Safety Report 7162337-5 (Version None)
Quarter: 2010Q4

REPORT INFORMATION
  Report Type: 
  Country: None (occurrence: None)
  Receive Date: 20101215
  Receipt Date: 20091014
  Transmission Date: 20110411
  Serious: Yes (Other)
  Sender: FDA-Public Use
  Company Number: SE-PFIZER INC-2009278117

PATIENT
  Age: 49 Year

DRUGS (4)
  1. LYRICA [Suspect]
     Indication: PAIN
     Dosage: 75 MG, 2X/DAY
     Dates: start: 20090122, end: 20090917
  2. LYRICA [Suspect]
     Indication: GENERALISED ANXIETY DISORDER
  3. SUMATRIPTAN [Concomitant]
     Indication: MIGRAINE
     Dosage: UNK
  4. DICLOFENAC [Concomitant]
     Indication: MIGRAINE
     Dosage: UNK

REACTIONS (5)
  - ABNORMAL DREAMS [None]
  - HALLUCINATION [None]
  - HEART RATE ABNORMAL [None]
  - PALPITATIONS [None]
  - SYNCOPE [None]
